FAERS Safety Report 9064158 (Version 1)
Quarter: 2013Q1

REPORT INFORMATION
  Report Type: Report from Study
  Country: US (occurrence: US)
  Receive Date: 20130131
  Receipt Date: 20130131
  Transmission Date: 20140127
  Serious: No
  Sender: FDA-Public Use
  Company Number: US-ABBOTT-12P-163-1022640-00

PATIENT
  Age: 56 Year
  Sex: Female

DRUGS (12)
  1. HUMIRA [Suspect]
     Indication: COLITIS ULCERATIVE
     Dosage: LOADING DOSE
     Route: 058
     Dates: start: 20121130
  2. HUMIRA [Suspect]
     Route: 058
  3. OXYCODONE [Concomitant]
     Indication: PAIN
     Dosage: AS NEEDED
  4. ZANAFLEX [Concomitant]
     Indication: MUSCLE RELAXANT THERAPY
     Dosage: 1-2 TABLETS
  5. DOXEPIN [Concomitant]
     Indication: INSOMNIA
     Dosage: AT BEDTIME
  6. SIMVASTATIN [Concomitant]
     Indication: BLOOD CHOLESTEROL
     Dosage: AT BEDTIME
  7. METOPROLOL [Concomitant]
     Indication: BLOOD PRESSURE
  8. DIOVAN [Concomitant]
     Indication: BLOOD PRESSURE
  9. LEVOTHYROXINE [Concomitant]
     Indication: HYPOTHYROIDISM
  10. AMLODIPINE [Concomitant]
     Indication: BLOOD PRESSURE
  11. LIALDA [Concomitant]
     Indication: COLITIS ULCERATIVE
  12. ASPIRIN [Concomitant]
     Indication: CARDIAC DISORDER

REACTIONS (1)
  - Colitis ulcerative [Not Recovered/Not Resolved]
